FAERS Safety Report 15508418 (Version 1)
Quarter: 2018Q4

REPORT INFORMATION
  Report Type: Spontaneous
  Country: US (occurrence: US)
  Receive Date: 20181016
  Receipt Date: 20181016
  Transmission Date: 20190205
  Serious: No
  Sender: FDA-Public Use
  Company Number: US-GLAXOSMITHKLINE-US2018182752

PATIENT
  Age: 63 Year
  Sex: Female

DRUGS (1)
  1. BENLYSTA [Suspect]
     Active Substance: BELIMUMAB
     Indication: PRODUCT USED FOR UNKNOWN INDICATION
     Dosage: 200 MG, WE
     Route: 058
     Dates: start: 201806

REACTIONS (5)
  - Insomnia [Recovered/Resolved]
  - Wrong technique in device usage process [Unknown]
  - Nasal congestion [Recovered/Resolved]
  - Psychomotor hyperactivity [Recovered/Resolved]
  - Headache [Recovered/Resolved]

NARRATIVE: CASE EVENT DATE: 201806
